FAERS Safety Report 8176407-6 (Version None)
Quarter: 2012Q1

REPORT INFORMATION
  Report Type: 
  Country: None (occurrence: None)
  Receive Date: 20120301
  Receipt Date: 20120223
  Transmission Date: 20120608
  Serious: Yes (Hospitalization)
  Sender: FDA-Public Use
  Company Number: JP-ASTELLAS-2012JP001550

PATIENT
  Age: 80 Year
  Sex: Female

DRUGS (5)
  1. ARICEPT [Concomitant]
     Dosage: 5 MG, UNKNOWN/D
     Route: 048
  2. VESICARE [Suspect]
     Dosage: 5 MG, UNKNOWN/D
     Route: 048
  3. JUVELA [Concomitant]
     Route: 065
  4. CABERGOLINE [Concomitant]
     Dosage: 1 MG, UNKNOWN/D
     Route: 065
  5. CRESTOR [Concomitant]
     Dosage: 2.5 MG, UNKNOWN/D
     Route: 065

REACTIONS (1)
  - CHEMICAL POISONING [None]
